FAERS Safety Report 6140119-0 (Version None)
Quarter: 2009Q1

REPORT INFORMATION
  Report Type: 
  Country: None (occurrence: None)
  Receive Date: 20090324
  Receipt Date: 20090317
  Transmission Date: 20090719
  Serious: Yes (Hospitalization, Disabling)
  Sender: FDA-Public Use
  Company Number: MSTR-NO-0807S-0038

PATIENT
  Age: 67 Year
  Sex: Male
  Weight: 58 kg

DRUGS (2)
  1. METASTRON [Suspect]
     Indication: METASTATIC PAIN
     Dosage: SINGLE DOSE, I.V.
     Route: 042
     Dates: start: 20080401, end: 20080401
  2. DICLOFENAC SODIUM [Concomitant]

REACTIONS (3)
  - GAIT DISTURBANCE [None]
  - MONOPLEGIA [None]
  - RECTAL ULCER HAEMORRHAGE [None]
